FAERS Safety Report 6924372-9 (Version None)
Quarter: 2010Q3

REPORT INFORMATION
  Report Type: 
  Country: None (occurrence: None)
  Receive Date: 20100811
  Receipt Date: 20100811
  Transmission Date: 20110219
  Serious: Yes (Hospitalization)
  Sender: FDA-Public Use
  Company Number: None

PATIENT
  Sex: Male
  Weight: 85.6 kg

DRUGS (1)
  1. SUTENT [Suspect]
     Indication: METASTATIC RENAL CELL CARCINOMA
     Dosage: 37.5MG 4WK ON 2WK OFF DAILY ORAL
     Route: 048
     Dates: start: 20081008, end: 20100716

REACTIONS (4)
  - EYE PAIN [None]
  - HAEMORRHAGE [None]
  - METASTASIS [None]
  - MOVEMENT DISORDER [None]
